FAERS Safety Report 8060179-X (Version None)
Quarter: 2012Q1

REPORT INFORMATION
  Report Type: 
  Country: None (occurrence: None)
  Receive Date: 20120120
  Receipt Date: 20120111
  Transmission Date: 20120608
  Serious: Yes (Other)
  Sender: FDA-Public Use
  Company Number: CA-ROCHE-1015772

PATIENT
  Sex: Male

DRUGS (1)
  1. XOLAIR [Suspect]
     Indication: ASTHMA
     Route: 058
     Dates: start: 20091109

REACTIONS (6)
  - PALPITATIONS [None]
  - THROAT IRRITATION [None]
  - INJECTION SITE HAEMATOMA [None]
  - BLOOD PRESSURE INCREASED [None]
  - ACNE [None]
  - COUGH [None]
